FAERS Safety Report 8102987-2 (Version None)
Quarter: 2012Q1

REPORT INFORMATION
  Report Type: 
  Country: None (occurrence: None)
  Receive Date: 20120127
  Receipt Date: 20120116
  Transmission Date: 20120608
  Serious: Yes (Death)
  Sender: FDA-Public Use
  Company Number: 2012POI057500039

PATIENT
  Age: 38 Year
  Sex: Male

DRUGS (6)
  1. ACETAMINOPHEN AND HYDROCODONE BITARTRATE [Suspect]
     Dates: end: 20100101
  2. DIAZEPAM [Suspect]
     Dates: end: 20100101
  3. TRAMADOL HCL [Suspect]
     Dates: end: 20100101
  4. ETHANOL [Suspect]
     Dates: end: 20100101
  5. COCAINE [Suspect]
     Dates: end: 20100101
  6. MORPHINE SULFATE [Suspect]
     Dates: end: 20100101

REACTIONS (3)
  - RESPIRATORY ARREST [None]
  - COMPLETED SUICIDE [None]
  - CARDIAC ARREST [None]
